FAERS Safety Report 9839584 (Version 13)
Quarter: 2017Q3

REPORT INFORMATION
  Report Type: Report from Study
  Country: CA (occurrence: CA)
  Receive Date: 20140124
  Receipt Date: 20170720
  Transmission Date: 20171128
  Serious: Yes (Hospitalization, Other)
  Sender: FDA-Public Use
  Company Number: CA-ROCHE-1229345

PATIENT
  Age: 67 Year
  Sex: Female
  Weight: 63.5 kg

DRUGS (21)
  1. DICLOFENAC [Concomitant]
     Active Substance: DICLOFENAC
  2. MAGNESIUM GLYCINATE [Concomitant]
     Active Substance: MAGNESIUM GLYCINATE
  3. LEFLUNOMIDE. [Concomitant]
     Active Substance: LEFLUNOMIDE
  4. PREDNISONE. [Concomitant]
     Active Substance: PREDNISONE
  5. KRILL OIL [Concomitant]
     Active Substance: DIETARY SUPPLEMENT
  6. RITUXAN [Suspect]
     Active Substance: RITUXIMAB
     Dosage: DAY 1 AND DAY 15
     Route: 042
     Dates: start: 20140210
  7. METHYLPREDNISOLON [Concomitant]
     Active Substance: METHYLPREDNISOLONE
     Indication: PREMEDICATION
     Route: 042
     Dates: start: 20130523
  8. HYDROMORPHONE [Concomitant]
     Active Substance: HYDROMORPHONE
  9. PREMARIN [Concomitant]
     Active Substance: ESTROGENS, CONJUGATED
  10. DIPHENHYDRAMINE. [Concomitant]
     Active Substance: DIPHENHYDRAMINE
     Indication: PREMEDICATION
     Route: 048
     Dates: start: 20130523, end: 20141106
  11. DIPHENHYDRAMINE. [Concomitant]
     Active Substance: DIPHENHYDRAMINE
     Route: 048
     Dates: start: 20150710
  12. RITUXAN [Suspect]
     Active Substance: RITUXIMAB
     Indication: RHEUMATOID ARTHRITIS
     Dosage: LAST DOSE 06/NOV/2014
     Route: 042
     Dates: start: 20130523
  13. ARAVA [Concomitant]
     Active Substance: LEFLUNOMIDE
  14. SYNTHROID [Concomitant]
     Active Substance: LEVOTHYROXINE SODIUM
  15. ACETAMINOPHEN. [Concomitant]
     Active Substance: ACETAMINOPHEN
     Indication: PREMEDICATION
     Route: 048
     Dates: start: 20130523, end: 20141106
  16. ACETAMINOPHEN. [Concomitant]
     Active Substance: ACETAMINOPHEN
     Route: 048
     Dates: start: 20150626
  17. CYMBALTA [Concomitant]
     Active Substance: DULOXETINE HYDROCHLORIDE
  18. DIPHENHYDRAMINE. [Concomitant]
     Active Substance: DIPHENHYDRAMINE
     Route: 048
     Dates: start: 20150626, end: 20150626
  19. IMOVANE [Concomitant]
     Active Substance: ZOPICLONE
  20. PLAQUENIL [Concomitant]
     Active Substance: HYDROXYCHLOROQUINE SULFATE
  21. ACTONEL [Concomitant]
     Active Substance: RISEDRONATE SODIUM

REACTIONS (23)
  - Rheumatoid arthritis [Unknown]
  - Body temperature decreased [Unknown]
  - Pubis fracture [Unknown]
  - Pain in extremity [Not Recovered/Not Resolved]
  - Impaired healing [Not Recovered/Not Resolved]
  - Intentional product use issue [Unknown]
  - Infusion related reaction [Recovered/Resolved]
  - Arthritis [Unknown]
  - Osteoarthritis [Recovering/Resolving]
  - Bone fragmentation [Unknown]
  - Device breakage [Recovered/Resolved]
  - Rib fracture [Unknown]
  - Gastric disorder [Recovered/Resolved]
  - Dental caries [Recovered/Resolved]
  - Infusion related reaction [Recovered/Resolved]
  - Pain [Unknown]
  - Hypertonic bladder [Unknown]
  - Spinal disorder [Not Recovered/Not Resolved]
  - Dry mouth [Unknown]
  - Off label use [Unknown]
  - Fall [Unknown]
  - Oral herpes [Not Recovered/Not Resolved]
  - Conjunctivitis [Not Recovered/Not Resolved]

NARRATIVE: CASE EVENT DATE: 20130523
